FAERS Safety Report 7795210-X (Version None)
Quarter: 2011Q3

REPORT INFORMATION
  Report Type: 
  Country: None (occurrence: None)
  Receive Date: 20110930
  Receipt Date: 20110921
  Transmission Date: 20111222
  Serious: Yes (Death)
  Sender: FDA-Public Use
  Company Number: CIP11002346

PATIENT
  Age: 62 Year
  Sex: Male

DRUGS (1)
  1. ACTONEL [Suspect]
     Dosage: 35 MG, ORAL
     Route: 048
     Dates: start: 20040210

REACTIONS (1)
  - GASTRIC ULCER HAEMORRHAGE [None]
